FAERS Safety Report 9586275 (Version 1)
Quarter: 2013Q4

REPORT INFORMATION
  Report Type: Spontaneous
  Country: US (occurrence: None)
  Receive Date: 20131002
  Receipt Date: 20131002
  Transmission Date: 20140711
  Serious: No
  Sender: FDA-Public Use
  Company Number: None

PATIENT
  Age: 35 Year
  Sex: Female
  Weight: 112.49 kg

DRUGS (1)
  1. ALLI [Suspect]

REACTIONS (2)
  - Hair colour changes [None]
  - Malabsorption [None]
